FAERS Safety Report 22144149 (Version 1)
Quarter: 2023Q1

REPORT INFORMATION
  Report Type: Report from Study
  Country: US (occurrence: US)
  Receive Date: 20230327
  Receipt Date: 20230327
  Transmission Date: 20230418
  Serious: Yes (Other)
  Sender: FDA-Public Use
  Company Number: US-ABBVIE-4305009

PATIENT
  Sex: Female

DRUGS (2)
  1. IMBRUVICA [Suspect]
     Active Substance: IBRUTINIB
     Indication: Product used for unknown indication
     Route: 048
     Dates: start: 20230202
  2. XANAX [Concomitant]
     Active Substance: ALPRAZOLAM
     Indication: Product used for unknown indication
     Route: 065

REACTIONS (26)
  - Bone cancer [Unknown]
  - Blood lactate dehydrogenase increased [Unknown]
  - Knee deformity [Unknown]
  - Peripheral swelling [Unknown]
  - White blood cell count abnormal [Unknown]
  - Hypoaesthesia [Unknown]
  - Headache [Unknown]
  - Fatigue [Unknown]
  - Arthralgia [Unknown]
  - Blood pressure increased [Unknown]
  - Blood calcium increased [Unknown]
  - Clostridium difficile colitis [Unknown]
  - Fibromyalgia [Unknown]
  - Neuropathy peripheral [Unknown]
  - Irritable bowel syndrome [Unknown]
  - Asthma [Unknown]
  - Myalgia [Unknown]
  - Dyspnoea [Unknown]
  - Epistaxis [Unknown]
  - Thirst decreased [Unknown]
  - Decreased appetite [Unknown]
  - Insomnia [Unknown]
  - Bone pain [Unknown]
  - Red blood cell count decreased [Unknown]
  - Dry mouth [Unknown]
  - Stomatitis [Unknown]
